FAERS Safety Report 7318431-9 (Version None)
Quarter: 2011Q1

REPORT INFORMATION
  Report Type: 
  Country: None (occurrence: None)
  Receive Date: 20110228
  Receipt Date: 20110223
  Transmission Date: 20110831
  Serious: No
  Sender: FDA-Public Use
  Company Number: US-PFIZER INC-2011040465

PATIENT
  Sex: Female
  Weight: 90.703 kg

DRUGS (2)
  1. PROTONIX [Suspect]
     Indication: GASTROOESOPHAGEAL REFLUX DISEASE
     Dosage: 40 MG, UNK
     Route: 048
  2. DIOVAN HCT [Concomitant]
     Indication: HYPERTENSION
     Dosage: 12.5/80 MG, DAILY
     Route: 048

REACTIONS (2)
  - DRUG ADMINISTRATION ERROR [None]
  - ARTHRALGIA [None]
